FAERS Safety Report 5408999-1 (Version None)
Quarter: 2007Q3

REPORT INFORMATION
  Report Type: 
  Country: None (occurrence: None)
  Receive Date: 20070808
  Receipt Date: 20070726
  Transmission Date: 20080115
  Serious: Yes (Other)
  Sender: FDA-Public Use
  Company Number: US-SHR-US-2007-012101

PATIENT
  Age: 47 Year
  Sex: Female

DRUGS (2)
  1. BETASERON [Suspect]
     Indication: RELAPSING-REMITTING MULTIPLE SCLEROSIS
     Route: 058
     Dates: start: 19990101, end: 20000601
  2. BETASERON [Suspect]
     Dosage: 8 MIU, EVERY 2D
     Route: 058
     Dates: start: 20050623

REACTIONS (4)
  - ABDOMINAL PAIN [None]
  - CARCINOID SYNDROME [None]
  - DIARRHOEA [None]
  - MUSCLE SPASMS [None]
